FAERS Safety Report 5130722-9 (Version None)
Quarter: 2006Q4

REPORT INFORMATION
  Report Type: 
  Country: None (occurrence: None)
  Receive Date: 20061018
  Receipt Date: 20061018
  Transmission Date: 20070319
  Serious: Yes (Death, Hospitalization)
  Sender: FDA-Public Use
  Company Number: None

PATIENT
  Age: 68 Year
  Sex: Female
  Weight: 50 kg

DRUGS (12)
  1. WARFARIN SODIUM [Suspect]
     Indication: ATRIAL FIBRILLATION
     Dosage: CHRONIC
  2. DIGOXIN [Concomitant]
  3. ENALAPRIL MALEATE [Concomitant]
  4. METOPROLOL [Concomitant]
  5. AMIODARONE HCL [Concomitant]
  6. CITALOPRAM [Concomitant]
  7. DETROL [Concomitant]
  8. GABAPENTIN [Concomitant]
  9. LIPITOR [Concomitant]
  10. POTASSIUM [Concomitant]
  11. PRILOSEC [Concomitant]
  12. SYNTHROID [Concomitant]

REACTIONS (10)
  - DEPRESSED LEVEL OF CONSCIOUSNESS [None]
  - DIZZINESS [None]
  - FALL [None]
  - INTERNATIONAL NORMALISED RATIO INCREASED [None]
  - LIVER FUNCTION TEST ABNORMAL [None]
  - NAUSEA [None]
  - RESPIRATORY ARREST [None]
  - SUBDURAL HAEMORRHAGE [None]
  - VISUAL DISTURBANCE [None]
  - VOMITING [None]
